FAERS Safety Report 6181318-1 (Version None)
Quarter: 2009Q2

REPORT INFORMATION
  Report Type: 
  Country: None (occurrence: None)
  Receive Date: 20090506
  Receipt Date: 20090424
  Transmission Date: 20091009
  Serious: Yes (Other)
  Sender: FDA-Public Use
  Company Number: US-PFIZER INC-2009206393

PATIENT
  Sex: Female
  Weight: 82.1 kg

DRUGS (6)
  1. CHANTIX [Suspect]
     Indication: SMOKING CESSATION THERAPY
     Dosage: UNK
     Dates: start: 20090410, end: 20090419
  2. DRUG, UNSPECIFIED [Concomitant]
     Indication: ABDOMINAL DISCOMFORT
     Dosage: UNK
  3. ARTHROTEC [Concomitant]
     Indication: ARTHRITIS
     Dosage: UNK
  4. DARVOCET [Concomitant]
     Indication: ARTHRITIS
     Dosage: UNK
  5. ALLEGRA D 24 HOUR [Concomitant]
     Dosage: UNK
  6. NEXIUM [Concomitant]
     Dosage: UNK

REACTIONS (1)
  - RECTAL HAEMORRHAGE [None]
